FAERS Safety Report 6448040-5 (Version None)
Quarter: 2009Q4

REPORT INFORMATION
  Report Type: 
  Country: None (occurrence: None)
  Receive Date: 20091120
  Receipt Date: 20091109
  Transmission Date: 20100525
  Serious: Yes (Other)
  Sender: FDA-Public Use
  Company Number: JP-ROCHE-668794

PATIENT

DRUGS (1)
  1. PEGASYS [Suspect]
     Route: 058

REACTIONS (1)
  - HEPATIC NEOPLASM [None]
